FAERS Safety Report 10149389 (Version 1)
Quarter: 2014Q2

REPORT INFORMATION
  Report Type: Spontaneous
  Country: US (occurrence: None)
  Receive Date: 20140430
  Receipt Date: 20140430
  Transmission Date: 20141212
  Serious: Yes (Hospitalization)
  Sender: FDA-Public Use
  Company Number: None

PATIENT
  Age: 31 Year
  Sex: Female

DRUGS (5)
  1. SULFAMETHOXAZOLE/TRIMETHOPRIM [Suspect]
     Indication: PNEUMONIA
     Route: 048
     Dates: start: 20131104, end: 20131118
  2. ALBUTEROL [Concomitant]
  3. ALPRAZOLAM [Concomitant]
  4. IPRATROPIUM [Concomitant]
  5. PREDNISONE [Concomitant]

REACTIONS (1)
  - Stevens-Johnson syndrome [None]
